FAERS Safety Report 20584754 (Version 1)
Quarter: 2022Q1

REPORT INFORMATION
  Report Type: Report from Study
  Country: US (occurrence: US)
  Receive Date: 20220311
  Receipt Date: 20220311
  Transmission Date: 20220423
  Serious: Yes (Disabling)
  Sender: FDA-Public Use
  Company Number: US-ABBVIE-22K-163-4289108-00

PATIENT
  Sex: Female

DRUGS (6)
  1. RINVOQ [Suspect]
     Active Substance: UPADACITINIB
     Indication: Rheumatoid arthritis
     Route: 048
  2. RINVOQ [Suspect]
     Active Substance: UPADACITINIB
     Indication: Rheumatoid arthritis
     Route: 048
     Dates: end: 202202
  3. HUMIRA [Suspect]
     Active Substance: ADALIMUMAB
     Indication: Product used for unknown indication
     Route: 058
  4. PFIZER-BIONTECH COVID-19 VACCINE [Concomitant]
     Active Substance: TOZINAMERAN
     Indication: COVID-19 immunisation
     Dosage: FIRST DOSE
     Route: 030
     Dates: start: 20210319, end: 20210319
  5. PFIZER-BIONTECH COVID-19 VACCINE [Concomitant]
     Active Substance: TOZINAMERAN
     Dosage: SECOND DOSE
     Route: 030
     Dates: start: 20210409, end: 20210409
  6. PFIZER-BIONTECH COVID-19 VACCINE [Concomitant]
     Active Substance: TOZINAMERAN
     Dosage: BOOSTER DOSE
     Route: 030
     Dates: start: 20210821, end: 20210821

REACTIONS (13)
  - Disability [Unknown]
  - Eye inflammation [Unknown]
  - Macular hole [Unknown]
  - Uveitis [Recovering/Resolving]
  - Urinary tract infection [Unknown]
  - Arthralgia [Not Recovered/Not Resolved]
  - Pneumonia [Unknown]
  - Rheumatoid arthritis [Not Recovered/Not Resolved]
  - Impaired quality of life [Unknown]
  - Infection [Unknown]
  - Unevaluable event [Unknown]
  - Therapeutic product effect incomplete [Unknown]
  - Gait inability [Unknown]

NARRATIVE: CASE EVENT DATE: 20180101
